FAERS Safety Report 8363754-8 (Version None)
Quarter: 2012Q2

REPORT INFORMATION
  Report Type: 
  Country: None (occurrence: None)
  Receive Date: 20120514
  Receipt Date: 20120501
  Transmission Date: 20120825
  Serious: Yes (Death, Hospitalization)
  Sender: FDA-Public Use
  Company Number: 1224701-2012-00003

PATIENT
  Age: 57 Year
  Sex: Female

DRUGS (14)
  1. CLOTRIMAZOLE TOPICAL [Concomitant]
  2. EPOGEN [Concomitant]
  3. ACETAMINOPHEN [Concomitant]
  4. HEPARIN [Concomitant]
  5. SENSIPAR [Concomitant]
  6. DIPHENHYDRAMINE HCL [Concomitant]
  7. VENOFER [Concomitant]
  8. CLONIDINE [Concomitant]
  9. ERGOCALCIFEROL [Concomitant]
  10. METOPROLOL TARTRATE [Concomitant]
  11. PHOSLYRA [Suspect]
     Indication: HYPERPHOSPHATAEMIA
     Dosage: 667MG/5ML, PO
     Route: 048
     Dates: start: 20120412, end: 20120426
  12. ZEMPLAR [Concomitant]
  13. ASPIRIN [Concomitant]
  14. NEPHROVITE [Concomitant]

REACTIONS (4)
  - PULMONARY EMBOLISM [None]
  - HYPOTENSION [None]
  - CARDIOMYOPATHY [None]
  - CHRONIC OBSTRUCTIVE PULMONARY DISEASE [None]
